FAERS Safety Report 24719310 (Version 1)
Quarter: 2024Q4

REPORT INFORMATION
  Report Type: Report from Study
  Country: US (occurrence: US)
  Receive Date: 20241210
  Receipt Date: 20241210
  Transmission Date: 20250115
  Serious: Yes (Other)
  Sender: ABBVIE
  Company Number: US-ABBVIE-6039104

PATIENT
  Age: 70 Year
  Sex: Female

DRUGS (1)
  1. SAVELLA [Suspect]
     Active Substance: MILNACIPRAN HYDROCHLORIDE
     Indication: Product used for unknown indication
     Dosage: FORM STRENGTH: 50 MG
     Route: 048

REACTIONS (2)
  - Sinus operation [Recovering/Resolving]
  - Posture abnormal [Recovering/Resolving]

NARRATIVE: CASE EVENT DATE: 20240101
